FAERS Safety Report 8177973-7 (Version None)
Quarter: 2012Q1

REPORT INFORMATION
  Report Type: 
  Country: None (occurrence: None)
  Receive Date: 20120130
  Receipt Date: 20110530
  Transmission Date: 20120608
  Serious: Yes (Hospitalization)
  Sender: FDA-Public Use
  Company Number: 034219

PATIENT
  Age: 15 Year
  Sex: Female

DRUGS (10)
  1. LEVETIRACETAM [Suspect]
  2. LAMOTRIGINE [Concomitant]
  3. TOPIRAMATE [Concomitant]
  4. DIVALPROEX SODIUM [Concomitant]
  5. ZONISAMIDE [Concomitant]
  6. PHENYTOIN [Concomitant]
  7. OXCARBAZEPINE [Concomitant]
  8. FELBAMATE [Concomitant]
  9. CARBAMAZEPINE [Concomitant]
  10. CLONAZEPAM [Concomitant]

REACTIONS (1)
  - MEMORY IMPAIRMENT [None]
